FAERS Safety Report 23836724 (Version 2)
Quarter: 2024Q3

REPORT INFORMATION
  Report Type: Report from Study
  Country: BR (occurrence: BR)
  Receive Date: 20240509
  Receipt Date: 20240701
  Transmission Date: 20241016
  Serious: Yes (Death, Hospitalization)
  Sender: BIOGEN
  Company Number: BR-BIOGEN-2024BI01262532

PATIENT
  Sex: Male
  Weight: 62 kg

DRUGS (2)
  1. TYSABRI [Suspect]
     Active Substance: NATALIZUMAB
     Indication: Multiple sclerosis
     Route: 050
     Dates: start: 20200121
  2. TYSABRI [Suspect]
     Active Substance: NATALIZUMAB
     Route: 050
     Dates: start: 202001, end: 202403

REACTIONS (8)
  - Cryptococcus test positive [Fatal]
  - Pneumonia [Not Recovered/Not Resolved]
  - Tuberculosis [Not Recovered/Not Resolved]
  - Weight decreased [Not Recovered/Not Resolved]
  - Cognitive disorder [Unknown]
  - Confusional state [Recovered/Resolved]
  - Dysstasia [Not Recovered/Not Resolved]
  - Anaemia [Unknown]

NARRATIVE: CASE EVENT DATE: 20230101
